FAERS Safety Report 5722080-3 (Version None)
Quarter: 2008Q2

REPORT INFORMATION
  Report Type: 
  Country: None (occurrence: None)
  Receive Date: 20080429
  Receipt Date: 20070607
  Transmission Date: 20081010
  Serious: No
  Sender: FDA-Public Use
  Company Number: US-ASTRAZENECA-2007UW09414

PATIENT
  Age: 66 Year
  Sex: Male
  Weight: 73.6 kg

DRUGS (4)
  1. NEXIUM [Suspect]
     Indication: GASTROOESOPHAGEAL REFLUX DISEASE
     Route: 048
     Dates: start: 20020101
  2. LIPITOR [Concomitant]
     Indication: HYPERCHOLESTEROLAEMIA
     Route: 048
     Dates: start: 20060101
  3. MEVACOR [Concomitant]
     Indication: HYPERCHOLESTEROLAEMIA
     Dates: end: 20050101
  4. BENTYL [Concomitant]
     Indication: IRRITABLE BOWEL SYNDROME
     Route: 048
     Dates: start: 20060101

REACTIONS (5)
  - ARRHYTHMIA [None]
  - ERUCTATION [None]
  - EXTRASYSTOLES [None]
  - FLATULENCE [None]
  - PALPITATIONS [None]
